FAERS Safety Report 16966531 (Version 5)
Quarter: 2020Q1

REPORT INFORMATION
  Report Type: Spontaneous
  Country: CN (occurrence: CN)
  Receive Date: 20191028
  Receipt Date: 20200122
  Transmission Date: 20200409
  Serious: Yes (Other)
  Sender: FDA-Public Use
  Company Number: NVSC2019CN016789

PATIENT
  Age: 44 Year
  Sex: Female

DRUGS (1)
  1. GLIVEC [Suspect]
     Active Substance: IMATINIB MESYLATE
     Indication: PRODUCT USED FOR UNKNOWN INDICATION
     Dosage: 4 DF (4 TABLETS/TIME), QD
     Route: 048
     Dates: start: 20191001

REACTIONS (7)
  - Rhinorrhoea [Recovered/Resolved]
  - Menorrhagia [Unknown]
  - Ocular hyperaemia [Recovered/Resolved]
  - Polymenorrhoea [Unknown]
  - Face oedema [Not Recovered/Not Resolved]
  - Drug ineffective [Unknown]
  - Erythema [Recovered/Resolved]

NARRATIVE: CASE EVENT DATE: 20191002
